FAERS Safety Report 5577641-1 (Version None)
Quarter: 2007Q4

REPORT INFORMATION
  Report Type: 
  Country: None (occurrence: None)
  Receive Date: 20071231
  Receipt Date: 20071226
  Transmission Date: 20080405
  Serious: Yes (Other)
  Sender: FDA-Public Use
  Company Number: US-BAYER-200717095NA

PATIENT
  Sex: Male

DRUGS (1)
  1. MAGNEVIST [Suspect]
     Indication: NUCLEAR MAGNETIC RESONANCE IMAGING ABDOMINAL
     Dates: start: 20050801, end: 20050801

REACTIONS (7)
  - ANXIETY [None]
  - ASTHENIA [None]
  - COLLAGEN DISORDER [None]
  - NEPHROGENIC SYSTEMIC FIBROSIS [None]
  - PAIN [None]
  - PHYSICAL DISABILITY [None]
  - SKIN DISORDER [None]
